FAERS Safety Report 9161482 (Version 3)
Quarter: 2013Q2

REPORT INFORMATION
  Report Type: Spontaneous
  Country: JP (occurrence: JP)
  Receive Date: 20130313
  Receipt Date: 20130408
  Transmission Date: 20140414
  Serious: Yes (Other)
  Sender: FDA-Public Use
  Company Number: JP-009507513-1303JPN004099

PATIENT
  Age: 38 Year
  Sex: Male

DRUGS (7)
  1. GASTER [Suspect]
     Indication: ABDOMINAL PAIN UPPER
     Dosage: 20 MG, UID/QD
     Route: 065
     Dates: start: 20120521, end: 20120521
  2. FIRSTCIN [Suspect]
     Indication: ANTIBIOTIC THERAPY
     Dosage: 1 G, UID/QD
     Route: 065
     Dates: start: 20120519, end: 20120521
  3. FLOMOX [Suspect]
     Indication: ANTIBIOTIC THERAPY
     Dosage: 1 DF, TID
     Route: 048
     Dates: start: 20120521
  4. IOPAMIRON [Suspect]
     Indication: SCAN WITH CONTRAST
     Dosage: 100 ML, UID
     Route: 065
     Dates: start: 20120519, end: 20120519
  5. MARZULENE ES [Concomitant]
     Indication: PROPHYLAXIS
     Dosage: UNK
     Route: 048
     Dates: start: 20120521
  6. BIO THREE [Concomitant]
     Indication: ABDOMINAL SYMPTOM
     Dosage: UNK
     Route: 048
     Dates: start: 20120521
  7. BUSCOPAN [Concomitant]
     Indication: ANALGESIC THERAPY
     Dosage: UNK
     Dates: start: 20120521

REACTIONS (2)
  - Drug-induced liver injury [Unknown]
  - Gastritis [Unknown]
